FAERS Safety Report 10640204 (Version 4)
Quarter: 2015Q1

REPORT INFORMATION
  Report Type: Spontaneous
  Country: JP (occurrence: JP)
  Receive Date: 20141209
  Receipt Date: 20150202
  Transmission Date: 20150720
  Serious: Yes (Life-Threatening, Other)
  Sender: FDA-Public Use
  Company Number: JP-JNJFOC-20141205052

PATIENT
  Age: 87 Year
  Sex: Female

DRUGS (17)
  1. VOLTAREN [Concomitant]
     Active Substance: DICLOFENAC SODIUM
     Indication: ARTHRALGIA
     Route: 054
     Dates: start: 20131018
  2. TRAMCET [Suspect]
     Active Substance: ACETAMINOPHEN\TRAMADOL
     Indication: PAIN
     Dosage: 2 DOSE ONCE A DAY
     Route: 048
     Dates: start: 20130529, end: 20131018
  3. TRAMCET [Suspect]
     Active Substance: ACETAMINOPHEN\TRAMADOL
     Indication: PAIN
     Dosage: 1 PER DAY
     Route: 048
     Dates: start: 20130307, end: 20130325
  4. EXFORGE [Concomitant]
     Active Substance: AMLODIPINE BESYLATE\VALSARTAN
     Route: 048
  5. VOLTAREN [Concomitant]
     Active Substance: DICLOFENAC SODIUM
     Indication: ARTHRALGIA
     Route: 054
  6. TRAMCET [Suspect]
     Active Substance: ACETAMINOPHEN\TRAMADOL
     Indication: PAIN
     Dosage: 1 DOSE 2 PER DAY
     Route: 048
     Dates: start: 20130326, end: 20130528
  7. NOVAMIN [Concomitant]
     Active Substance: PROCHLORPERAZINE MALEATE
     Indication: PROPHYLAXIS
     Route: 048
     Dates: start: 20130307
  8. HYALEIN [Concomitant]
     Active Substance: HYALURONATE SODIUM
     Route: 065
  9. KENACORT A [Concomitant]
     Indication: ARTHRALGIA
     Route: 065
  10. MERCAZOLE [Concomitant]
     Active Substance: CARBIMAZOLE
     Route: 065
  11. NOVAMIN [Concomitant]
     Active Substance: PROCHLORPERAZINE MALEATE
     Indication: PROPHYLAXIS
     Route: 048
     Dates: start: 20130426
  12. XYLOCAINE [Concomitant]
     Active Substance: LIDOCAINE HYDROCHLORIDE
     Indication: ARTHRALGIA
     Route: 065
  13. XYLOCAINE [Concomitant]
     Active Substance: LIDOCAINE HYDROCHLORIDE
     Indication: ARTHRALGIA
     Route: 065
     Dates: start: 20130819, end: 20130819
  14. XYLOCAINE [Concomitant]
     Active Substance: LIDOCAINE HYDROCHLORIDE
     Indication: ARTHRALGIA
     Route: 065
     Dates: start: 20130426, end: 20130426
  15. KENACORT A [Concomitant]
     Indication: ARTHRALGIA
     Route: 065
     Dates: start: 20130819, end: 20130819
  16. KARY UNI [Concomitant]
     Active Substance: PIRENOXINE
     Route: 065
  17. KENACORT A [Concomitant]
     Indication: ARTHRALGIA
     Route: 065
     Dates: start: 20130426, end: 20130426

REACTIONS (12)
  - Nausea [Unknown]
  - Drug withdrawal syndrome [Recovered/Resolved]
  - Glossodynia [Recovered/Resolved]
  - Depression [Recovered/Resolved]
  - Dizziness [Unknown]
  - Stomatitis [Recovered/Resolved]
  - Headache [Recovered/Resolved]
  - Feeling of body temperature change [Recovered/Resolved]
  - Suicidal ideation [Recovered/Resolved]
  - Malaise [Recovered/Resolved]
  - Adverse event [Recovered/Resolved]
  - Pain in extremity [Unknown]

NARRATIVE: CASE EVENT DATE: 20130312
